FAERS Safety Report 4589320-8 (Version None)
Quarter: 2005Q1

REPORT INFORMATION
  Report Type: 
  Country: None (occurrence: None)
  Receive Date: 20050216
  Receipt Date: 20050201
  Transmission Date: 20050727
  Serious: Yes (Other)
  Sender: FDA-Public Use
  Company Number: USA050289651

PATIENT
  Sex: Male
  Weight: 91 kg

DRUGS (2)
  1. HUMULIN N [Suspect]
     Indication: DIABETES MELLITUS
     Dosage: 38 U DAY
     Dates: start: 20010101
  2. NITRODUR II(GLYCERYL TRINITRATE) [Concomitant]

REACTIONS (1)
  - RETINAL HAEMORRHAGE [None]
